FAERS Safety Report 24766639 (Version 1)
Quarter: 2024Q4

REPORT INFORMATION
  Report Type: Spontaneous
  Country: FR (occurrence: FR)
  Receive Date: 20241223
  Receipt Date: 20241223
  Transmission Date: 20250114
  Serious: Yes (Other)
  Sender: FRESENIUS KABI
  Company Number: None

PATIENT
  Age: 34 Year
  Sex: Female
  Weight: 73 kg

DRUGS (6)
  1. PACLITAXEL [Suspect]
     Active Substance: PACLITAXEL
     Indication: Breast cancer
     Route: 042
     Dates: start: 20240823
  2. CARBOPLATIN [Suspect]
     Active Substance: CARBOPLATIN
     Indication: Breast cancer
     Dosage: THEN 600 MG
     Route: 042
     Dates: start: 20240823
  3. KEYTRUDA [Suspect]
     Active Substance: PEMBROLIZUMAB
     Indication: Breast cancer
     Route: 042
     Dates: start: 20240823, end: 20241031
  4. ONDANSETRON [Concomitant]
     Active Substance: ONDANSETRON
     Indication: Product used for unknown indication
  5. PRIMPERAN [Concomitant]
     Active Substance: METOCLOPRAMIDE HYDROCHLORIDE
     Indication: Product used for unknown indication
  6. LIPEGFILGRASTIM ((BACTERIA/ESCHERICHIA COLI)) [Concomitant]
     Indication: Product used for unknown indication

REACTIONS (1)
  - Hepatic cytolysis [Recovered/Resolved]

NARRATIVE: CASE EVENT DATE: 20240906
